FAERS Safety Report 20388104 (Version 1)
Quarter: 2022Q1

REPORT INFORMATION
  Report Type: Spontaneous
  Country: US (occurrence: US)
  Receive Date: 20220128
  Receipt Date: 20220128
  Transmission Date: 20220423
  Serious: No
  Sender: FDA-Public Use
  Company Number: US-ENDO PHARMACEUTICALS INC-2021-012436

PATIENT

DRUGS (2)
  1. QWO [Suspect]
     Active Substance: COLLAGENASE CLOSTRIDIUM HISTOLYTICUM-AAES
     Indication: Product used for unknown indication
     Dosage: UNK UNKNOWN, UNKNOWN;FIRST TREATMENT
     Route: 065
     Dates: start: 2021
  2. QWO [Suspect]
     Active Substance: COLLAGENASE CLOSTRIDIUM HISTOLYTICUM-AAES
     Dosage: UNK UNKNOWN, UNKNOWN; SEOND TREATMENT
     Route: 065
     Dates: start: 2021

REACTIONS (5)
  - Off label use [Unknown]
  - Muscular weakness [Unknown]
  - Contusion [Unknown]
  - Swelling [Unknown]
  - Nodule [Unknown]

NARRATIVE: CASE EVENT DATE: 20210101
